FAERS Safety Report 10783045 (Version 1)
Quarter: 2015Q1

REPORT INFORMATION
  Report Type: Spontaneous
  Country: CH (occurrence: CH)
  Receive Date: 20150210
  Receipt Date: 20150210
  Transmission Date: 20150721
  Serious: Yes (Death, Life-Threatening, Hospitalization, Other)
  Sender: FDA-Public Use
  Company Number: CH-PFIZER INC-2015048102

PATIENT
  Age: 54 Year
  Sex: Female

DRUGS (6)
  1. METHOTREXATE SODIUM. [Suspect]
     Active Substance: METHOTREXATE SODIUM
     Indication: CROHN^S DISEASE
     Dosage: 20 MG, WEEKLY
     Route: 030
     Dates: start: 200512
  2. ALDACTONE [Suspect]
     Active Substance: SPIRONOLACTONE
     Dosage: 100 MG, 2X/DAY (0-0-2)
  3. DAFALGAN [Suspect]
     Active Substance: ACETAMINOPHEN
     Indication: BACK PAIN
     Dosage: 1 G, 5-6 TABLETS 2X/DAY (= 10-12 G/DAY) FOR SEVERAL DAYS
     Route: 048
  4. PANTOPRAZOLE [Concomitant]
     Active Substance: PANTOPRAZOLE SODIUM
     Dosage: 40 MG, 2X/DAY (1-0-1)
     Route: 048
  5. CALCIMAGON [Concomitant]
     Active Substance: CALCIUM
     Dosage: UNK, 2X/DAY (2-0-0)
     Route: 048
  6. BIOFLORIN [Concomitant]
     Indication: DIARRHOEA
     Dosage: UNK, AS NEEDED
     Route: 048

REACTIONS (4)
  - Accidental overdose [Fatal]
  - Multi-organ failure [Unknown]
  - Hepatic failure [Fatal]
  - Renal failure [Fatal]

NARRATIVE: CASE EVENT DATE: 201411
